FAERS Safety Report 9613832 (Version 1)
Quarter: 2013Q4

REPORT INFORMATION
  Report Type: Spontaneous
  Country: US (occurrence: US)
  Receive Date: 20131010
  Receipt Date: 20131010
  Transmission Date: 20140711
  Serious: No
  Sender: FDA-Public Use
  Company Number: US-ALLERGAN-1218415US

PATIENT
  Sex: Female

DRUGS (5)
  1. CLEANSER [Concomitant]
     Indication: THERAPEUTIC SKIN CARE TOPICAL
     Dosage: DF
  2. SKIN POLISHER [Concomitant]
     Indication: THERAPEUTIC SKIN CARE TOPICAL
     Dosage: DF
  3. PURIFYING TONER [Concomitant]
     Indication: THERAPEUTIC SKIN CARE TOPICAL
     Dosage: DF
  4. VANIQA [Suspect]
     Indication: HAIR GROWTH ABNORMAL
     Dosage: DF [APPLIED ON THE UPPER LIP AND SIDE OF FACE]
     Route: 061
     Dates: start: 20121226
  5. LYTERA BRIGHTENING COMPLEX [Suspect]
     Indication: THERAPEUTIC SKIN CARE TOPICAL
     Dosage: DF [APPLIED ON THE AREAS THAT DID NOT HAVE VANIQA]
     Route: 061
     Dates: start: 20121227

REACTIONS (3)
  - Erythema [Recovered/Resolved]
  - Rash [Not Recovered/Not Resolved]
  - Acne [Not Recovered/Not Resolved]
